FAERS Safety Report 7577828-2 (Version None)
Quarter: 2011Q2

REPORT INFORMATION
  Report Type: 
  Country: None (occurrence: None)
  Receive Date: 20110628
  Receipt Date: 20110616
  Transmission Date: 20111010
  Serious: Yes (Other)
  Sender: FDA-Public Use
  Company Number: PHHY2010US46450

PATIENT
  Sex: Female
  Weight: 75.283 kg

DRUGS (10)
  1. HYDROCHLOROTHIAZIDE [Concomitant]
  2. EXTAVIA [Suspect]
     Indication: MULTIPLE SCLEROSIS
     Dosage: 0.25 MG, QOD
     Route: 058
     Dates: start: 20100630
  3. BETASERON [Suspect]
     Indication: MULTIPLE SCLEROSIS
     Dosage: 0.3 MG, QOD
     Route: 058
     Dates: start: 20050101, end: 20100601
  4. ZANAFLEX [Concomitant]
     Indication: MUSCLE SPASMS
     Dosage: 4 MG, QHS
     Route: 048
  5. OMEPRAZOLE [Concomitant]
  6. WELLBUTRIN XL [Concomitant]
     Indication: DEPRESSION
     Dosage: 150 MG, QAM
     Route: 048
  7. ZETIA [Concomitant]
  8. IMMUNOGLOBULINS [Concomitant]
     Indication: DYSPHEMIA
     Route: 042
  9. CYMBALTA [Concomitant]
  10. NEURONTIN [Concomitant]
     Indication: PAIN
     Dosage: 800 MG, QID
     Route: 048

REACTIONS (11)
  - PYREXIA [None]
  - LOSS OF CONSCIOUSNESS [None]
  - SPEECH DISORDER [None]
  - MUSCULAR WEAKNESS [None]
  - INFLUENZA LIKE ILLNESS [None]
  - DISORIENTATION [None]
  - MALAISE [None]
  - INJECTION SITE URTICARIA [None]
  - INJECTION SITE ERYTHEMA [None]
  - FATIGUE [None]
  - TREMOR [None]
